FAERS Safety Report 10744121 (Version 1)
Quarter: 2015Q1

REPORT INFORMATION
  Report Type: Spontaneous
  Country: US (occurrence: None)
  Receive Date: 20150126
  Receipt Date: 20150126
  Transmission Date: 20150721
  Serious: No
  Sender: FDA-Public Use
  Company Number: None

PATIENT
  Age: 74 Year
  Sex: Male
  Weight: 92.4 kg

DRUGS (1)
  1. PACLITAXEL. [Suspect]
     Active Substance: PACLITAXEL
     Dates: start: 20141124, end: 20141124

REACTIONS (3)
  - Syncope [None]
  - Cough [None]
  - Angioedema [None]

NARRATIVE: CASE EVENT DATE: 20141124
